FAERS Safety Report 25805016 (Version 1)
Quarter: 2025Q3

REPORT INFORMATION
  Report Type: Spontaneous
  Country: EU (occurrence: EU)
  Receive Date: 20250916
  Receipt Date: 20250916
  Transmission Date: 20251021
  Serious: Yes (Hospitalization)
  Sender: CHEPLAPHARM
  Company Number: None

PATIENT
  Age: 71 Year
  Sex: Male
  Weight: 70 kg

DRUGS (9)
  1. CLONAZEPAM [Interacting]
     Active Substance: CLONAZEPAM
     Indication: Epilepsy
     Dosage: DAILY DOSE: 1 MILLIGRAM
     Route: 048
     Dates: start: 20250517, end: 20250517
  2. VIMPAT [Interacting]
     Active Substance: LACOSAMIDE
     Indication: Epilepsy
     Route: 048
     Dates: start: 20250517, end: 20250519
  3. VIMPAT [Interacting]
     Active Substance: LACOSAMIDE
     Indication: Epilepsy
     Route: 048
  4. OXAZEPAM [Interacting]
     Active Substance: OXAZEPAM
     Indication: Alcohol withdrawal syndrome
     Dosage: DAILY DOSE: 30 MILLIGRAM
     Route: 048
     Dates: start: 20250518, end: 20250518
  5. OXAZEPAM [Interacting]
     Active Substance: OXAZEPAM
     Indication: Alcohol detoxification
     Dosage: DAILY DOSE: 30 MILLIGRAM
     Route: 048
     Dates: start: 20250518, end: 20250518
  6. ATORVASTATIN [Concomitant]
     Active Substance: ATORVASTATIN
     Dosage: DAILY DOSE: 80 MILLIGRAM
     Route: 048
  7. KARDEGIC [Concomitant]
     Active Substance: ASPIRIN DL-LYSINE
     Dosage: POWDER FOR ORAL SOLUTION IN SINGLE-DOSE SACHETS?DAILY DOSE: 1 DOSAGE FORM
     Route: 048
  8. BISOPROLOL FUMARATE [Concomitant]
     Active Substance: BISOPROLOL FUMARATE
     Dosage: DAILY DOSE: 2.5 MILLIGRAM
     Route: 048
  9. ENALAPRIL MALEATE [Concomitant]
     Active Substance: ENALAPRIL MALEATE
     Dosage: DAILY DOSE: 5 MILLIGRAM
     Route: 048

REACTIONS (10)
  - Hemiparesis [Unknown]
  - Neurologic neglect syndrome [Unknown]
  - Clonus [Unknown]
  - Dysarthria [Unknown]
  - Motor dysfunction [Unknown]
  - Fall [Not Recovered/Not Resolved]
  - Malaise [Unknown]
  - Drug interaction [Not Recovered/Not Resolved]
  - Extradural haematoma [Unknown]
  - Brain herniation [Unknown]

NARRATIVE: CASE EVENT DATE: 20250517
